FAERS Safety Report 18854292 (Version 1)
Quarter: 2021Q1

REPORT INFORMATION
  Report Type: Report from Study
  Country: US (occurrence: US)
  Receive Date: 20210205
  Receipt Date: 20210205
  Transmission Date: 20210420
  Serious: Yes (Other)
  Sender: FDA-Public Use
  Company Number: US-ASTRAZENECA-2021A023207

PATIENT
  Sex: Female

DRUGS (2)
  1. TAGRISSO [Suspect]
     Active Substance: OSIMERTINIB
     Indication: LUNG NEOPLASM MALIGNANT
     Dosage: UNKNOWN
     Route: 048
  2. RADIATION THERAPY [Suspect]
     Active Substance: RADIATION THERAPY
     Route: 065

REACTIONS (3)
  - Nail disorder [Unknown]
  - Cerebral disorder [Unknown]
  - Dry skin [Unknown]
